FAERS Safety Report 4986355-8 (Version None)
Quarter: 2006Q2

REPORT INFORMATION
  Report Type: 
  Country: None (occurrence: None)
  Receive Date: 20060428
  Receipt Date: 20060427
  Transmission Date: 20061013
  Serious: Yes (Other)
  Sender: FDA-Public Use
  Company Number: US-GLAXOSMITHKLINE-A0603556A

PATIENT
  Age: 50 Year
  Sex: Female

DRUGS (4)
  1. WELLBUTRIN [Suspect]
     Indication: DEPRESSION
     Dosage: 300MG PER DAY
     Route: 048
  2. PROZAC [Concomitant]
  3. RITALIN [Concomitant]
  4. NORTRIPTYLINE HCL [Concomitant]

REACTIONS (4)
  - BLOOD POTASSIUM DECREASED [None]
  - CONVULSION [None]
  - DEHYDRATION [None]
  - STRESS [None]
